FAERS Safety Report 23661455 (Version 1)
Quarter: 2024Q1

REPORT INFORMATION
  Report Type: Spontaneous
  Country: US (occurrence: US)
  Receive Date: 20240322
  Receipt Date: 20240322
  Transmission Date: 20240410
  Serious: No
  Sender: FDA-Public Use
  Company Number: US-ZPPROD-ZP24US000690

PATIENT
  Age: 68 Year
  Sex: Male

DRUGS (2)
  1. ZEGALOGUE [Suspect]
     Active Substance: DASIGLUCAGON
     Route: 058
  2. OZEMPIC [Suspect]
     Active Substance: SEMAGLUTIDE
     Indication: Glucose tolerance impaired
     Dosage: UNK, WEEKLY
     Route: 058
     Dates: start: 202301

REACTIONS (1)
  - Product dispensing error [Unknown]

NARRATIVE: CASE EVENT DATE: 20240109
